FAERS Safety Report 7335959-6 (Version None)
Quarter: 2011Q1

REPORT INFORMATION
  Report Type: 
  Country: None (occurrence: None)
  Receive Date: 20110307
  Receipt Date: 20110301
  Transmission Date: 20110831
  Serious: Yes (Other)
  Sender: FDA-Public Use
  Company Number: CHPA2011US03317

PATIENT
  Age: 50 Year
  Sex: Male
  Weight: 92.971 kg

DRUGS (2)
  1. PREVACID 24 HR [Suspect]
     Dosage: 15 MG, QD
     Route: 048
     Dates: start: 20100701, end: 20100701
  2. PREVACID 24 HR [Suspect]
     Indication: DYSPEPSIA
     Dosage: 15 MG, QD
     Route: 048
     Dates: start: 20110220, end: 20110223

REACTIONS (7)
  - DRUG INEFFECTIVE [None]
  - NAUSEA [None]
  - LIP SWELLING [None]
  - RASH MACULAR [None]
  - INCORRECT DRUG ADMINISTRATION DURATION [None]
  - URTICARIA [None]
  - PRURITUS [None]
